FAERS Safety Report 8915241 (Version 2)
Quarter: 2013Q2

REPORT INFORMATION
  Report Type: Spontaneous
  Country: US (occurrence: US)
  Receive Date: 20121119
  Receipt Date: 20130501
  Transmission Date: 20140414
  Serious: No
  Sender: FDA-Public Use
  Company Number: US-009507513-1211USA005892

PATIENT
  Age: 81 Year
  Sex: Male
  Weight: 83.9 kg

DRUGS (9)
  1. CLARITIN REDITABS [Suspect]
     Indication: COUGH
     Dosage: 10 MG, QD
     Route: 048
     Dates: start: 2012
  2. CLARITIN REDITABS [Suspect]
     Indication: MEDICAL OBSERVATION
     Dosage: 5 MG, QD
     Route: 048
     Dates: start: 201301
  3. METOPROLOL [Concomitant]
     Indication: PRODUCT USED FOR UNKNOWN INDICATION
     Dosage: UNK, UNKNOWN
  4. SIMVASTATIN [Concomitant]
     Indication: PRODUCT USED FOR UNKNOWN INDICATION
     Dosage: UNK, UNKNOWN
  5. ISOSORBIDE [Concomitant]
     Indication: PRODUCT USED FOR UNKNOWN INDICATION
     Dosage: UNK, UNKNOWN
  6. CYANOCOBALAMIN [Concomitant]
     Indication: PRODUCT USED FOR UNKNOWN INDICATION
     Dosage: UNK, UNKNOWN
  7. CALCIUM (UNSPECIFIED) [Concomitant]
     Indication: PRODUCT USED FOR UNKNOWN INDICATION
     Dosage: UNK, UNKNOWN
  8. ASPIRIN [Concomitant]
     Indication: PRODUCT USED FOR UNKNOWN INDICATION
     Dosage: UNK, UNKNOWN
  9. VITAMINS (UNSPECIFIED) [Concomitant]
     Indication: PRODUCT USED FOR UNKNOWN INDICATION
     Dosage: UNK, UNKNOWN

REACTIONS (5)
  - Eye pain [Unknown]
  - Ocular hyperaemia [Unknown]
  - Cough [Not Recovered/Not Resolved]
  - Photopsia [Recovered/Resolved]
  - Off label use [Unknown]
